FAERS Safety Report 24562796 (Version 2)
Quarter: 2025Q1

REPORT INFORMATION
  Report Type: Report from Study
  Country: IN (occurrence: IN)
  Receive Date: 20241029
  Receipt Date: 20250130
  Transmission Date: 20250408
  Serious: Yes (Death, Other)
  Sender: ROCHE
  Company Number: IN-ROCHE-10000080771

PATIENT
  Age: 48 Year
  Sex: Female

DRUGS (1)
  1. PHESGO [Suspect]
     Active Substance: HYALURONIDASE-ZZXF\PERTUZUMAB\TRASTUZUMAB
     Indication: Breast cancer metastatic
     Route: 058
     Dates: start: 20230605

REACTIONS (5)
  - Off label use [Unknown]
  - Faeces soft [Unknown]
  - Ascites [Unknown]
  - Metastases to bone [Unknown]
  - Death [Fatal]
